FAERS Safety Report 18375437 (Version 4)
Quarter: 2023Q2

REPORT INFORMATION
  Report Type: Report from Study
  Country: US (occurrence: US)
  Receive Date: 20201012
  Receipt Date: 20230512
  Transmission Date: 20230722
  Serious: Yes (Hospitalization, Other)
  Sender: FDA-Public Use
  Company Number: US-BAXTER-2020BAX020659

PATIENT
  Age: 11 Year
  Sex: Male
  Weight: 52.6 kg

DRUGS (20)
  1. CYCLOPHOSPHAMIDE [Suspect]
     Active Substance: CYCLOPHOSPHAMIDE
     Indication: Acute lymphocytic leukaemia
     Dosage: UNK
     Route: 042
  2. RUXOLITINIB [Suspect]
     Active Substance: RUXOLITINIB
     Indication: Acute lymphocytic leukaemia
     Dosage: TABLET, FIRST DOSE
     Route: 048
     Dates: start: 20190813
  3. RUXOLITINIB [Suspect]
     Active Substance: RUXOLITINIB
     Dosage: TABLET, LAST DOSE PRIOR TO AES ALLERGIC REACTION RED MAN SYNDROME, FEVER AND PLATELET COUNT DECREASE
     Route: 048
     Dates: start: 20190826, end: 20190826
  4. RUXOLITINIB [Suspect]
     Active Substance: RUXOLITINIB
     Dosage: TABLET, LAST DOSE PRIOR TO AE NEUTROPHIL COUNT DECREASED
     Route: 048
  5. VINCRISTINE [Suspect]
     Active Substance: VINCRISTINE
     Indication: Acute lymphocytic leukaemia
     Dosage: 2 MG, QD, FIRST DOSE
     Route: 042
     Dates: start: 20190827
  6. VINCRISTINE [Suspect]
     Active Substance: VINCRISTINE
     Dosage: 2 MG, QD, LAST DOSE PRIOR TO AE^S OF ALLERGIC REACTION RED MAN SYNDROME, FEVER.
     Route: 042
     Dates: start: 20190903, end: 20190903
  7. VINCRISTINE [Suspect]
     Active Substance: VINCRISTINE
     Dosage: 2 MG, QD, LAST DOSE PRIOR TO AE^S OF PLATELET COUNT DECREASED AND NEUTROPHIL COUNT DECREASED
     Route: 042
  8. METHOTREXATE [Suspect]
     Active Substance: METHOTREXATE
     Indication: Acute lymphocytic leukaemia
     Dosage: 15 MG, QD, FIRST DOSE
     Route: 037
     Dates: start: 20190813
  9. METHOTREXATE [Suspect]
     Active Substance: METHOTREXATE
     Dosage: 15 MG, QD, LAST DOSE PRIOR TO AE^S OF ALLERGIC REACTION RED MAN SYNDROME, FEVER.
     Route: 037
     Dates: start: 20190903, end: 20190903
  10. METHOTREXATE [Suspect]
     Active Substance: METHOTREXATE
     Dosage: 15 MG, QD, LAST DOSE PRIOR TO AE^S OF PLATELET COUNT DECREASED AND NEUTROPHIL COUNT DECREASED
     Route: 037
  11. PEGASPARGASE [Suspect]
     Active Substance: PEGASPARGASE
     Indication: Acute lymphocytic leukaemia
     Dosage: DOSE: 2500 IU/M2, QD
     Route: 042
     Dates: start: 20190827
  12. PEGASPARGASE [Suspect]
     Active Substance: PEGASPARGASE
     Dosage: DOSE: 2500 IU/M2, LAST DOSE PRIOR TO AE^S OF ALLERGIC REACTION RED MAN SYNDROME, FEVER AND PLATELET
     Route: 042
     Dates: start: 20190827, end: 20190827
  13. PEGASPARGASE [Suspect]
     Active Substance: PEGASPARGASE
     Dosage: DOSE: 2500 IU/M2, LAST DOSE PRIOR TO AE NEUTROPHIL COUNT DECREASED, QD
     Route: 042
  14. CYTARABINE [Suspect]
     Active Substance: CYTARABINE
     Indication: Acute lymphocytic leukaemia
     Dosage: 75 MG/M2, QD, FIRST DOSE
     Route: 042
     Dates: start: 20190813
  15. CYTARABINE [Suspect]
     Active Substance: CYTARABINE
     Dosage: 75 MG/M2, QD, LAST DOSE PRIOR TO AE^S OF ALLERGIC REACTION RED MAN SYNDROME, FEVER AND PLATELET COUN
     Route: 042
     Dates: start: 20190823, end: 20190823
  16. CYTARABINE [Suspect]
     Active Substance: CYTARABINE
     Dosage: 75 MG/M2, QD, LAST DOSE PRIOR TO AE NEUTROPHIL COUNT DECREASED
     Route: 042
  17. MERCAPTOPURINE [Suspect]
     Active Substance: MERCAPTOPURINE
     Indication: Acute lymphocytic leukaemia
     Dosage: UNK, PRN
     Route: 048
  18. MERCAPTOPURINE [Suspect]
     Active Substance: MERCAPTOPURINE
     Dosage: LAST DOSE PRIOR TO ALL AE^S, PRN
     Route: 048
  19. RANITIDINE [Concomitant]
     Active Substance: RANITIDINE
     Dosage: UNK, PRN
     Route: 065
  20. VANCOMYCIN [Concomitant]
     Active Substance: VANCOMYCIN
     Dosage: 15 MG/KG,BID
     Route: 042
     Dates: start: 20190909, end: 20190910

REACTIONS (4)
  - Vancomycin infusion reaction [Recovered/Resolved]
  - Febrile neutropenia [Recovered/Resolved]
  - Neutrophil count decreased [Recovered/Resolved]
  - Platelet count decreased [Recovered/Resolved]

NARRATIVE: CASE EVENT DATE: 20190817
